FAERS Safety Report 18468913 (Version 7)
Quarter: 2023Q4

REPORT INFORMATION
  Report Type: Report from Study
  Country: MX (occurrence: MX)
  Receive Date: 20201105
  Receipt Date: 20231129
  Transmission Date: 20240110
  Serious: Yes (Disabling, Other)
  Sender: FDA-Public Use
  Company Number: MX-002147023-NVSC2020MX280104

PATIENT

DRUGS (8)
  1. RUXOLITINIB [Suspect]
     Active Substance: RUXOLITINIB
     Indication: Primary myelofibrosis
     Dosage: 15 MG, Q12H (EVERY 12 HOURS)
     Route: 048
     Dates: start: 20190519, end: 20200121
  2. RUXOLITINIB [Suspect]
     Active Substance: RUXOLITINIB
     Dosage: 20 MG, Q12H (EVERY 12 HOURS)
     Route: 048
     Dates: start: 20200122
  3. RUXOLITINIB [Suspect]
     Active Substance: RUXOLITINIB
     Dosage: UNK
     Route: 048
  4. IPRATROPIUM BROMIDE [Concomitant]
     Active Substance: IPRATROPIUM BROMIDE\IPRATROPIUM BROMIDE ANHYDROUS
     Indication: Emphysema
     Dosage: 3 DF, QD 3 SHOTS DAILY (1.68 MG/8.77 MG)
     Route: 048
     Dates: start: 2009
  5. PROPRANOLOL [Concomitant]
     Active Substance: PROPRANOLOL HYDROCHLORIDE
     Indication: Hypertension
     Dosage: 40 MG, BID (IN THE MORNING AND AT NIGHT)
     Route: 048
     Dates: start: 2001
  6. VEGAN PROTEIN [Concomitant]
     Indication: Product used for unknown indication
     Dosage: UNK
     Route: 065
  7. FUROSEMIDE [Concomitant]
     Active Substance: FUROSEMIDE
     Indication: Diuretic therapy
     Dosage: 40 MG, Q12H
     Route: 048
  8. SPIRONOLACTONE [Concomitant]
     Active Substance: SPIRONOLACTONE
     Indication: Gastric varices
     Dosage: 25 MG, BID (1 IN MORNING AND 1/2 AT NOON)
     Route: 048

REACTIONS (26)
  - Anaemia [Not Recovered/Not Resolved]
  - Limb injury [Unknown]
  - Chronic obstructive pulmonary disease [Unknown]
  - Clumsiness [Unknown]
  - Discomfort [Unknown]
  - Arterial disorder [Unknown]
  - Dizziness [Recovered/Resolved]
  - Crying [Unknown]
  - Embolism [Unknown]
  - Splenomegaly [Unknown]
  - Polydipsia [Unknown]
  - Feeling abnormal [Unknown]
  - Memory impairment [Unknown]
  - Aphasia [Unknown]
  - Hyperhidrosis [Unknown]
  - Dyspepsia [Unknown]
  - Hypothyroidism [Not Recovered/Not Resolved]
  - Infarction [Unknown]
  - Renal disorder [Not Recovered/Not Resolved]
  - Decreased activity [Unknown]
  - Frustration tolerance decreased [Unknown]
  - Hypokinesia [Unknown]
  - Gastric fibrosis [Unknown]
  - Abdominal distension [Unknown]
  - Peripheral swelling [Not Recovered/Not Resolved]
  - Weight increased [Unknown]

NARRATIVE: CASE EVENT DATE: 20190501
